FAERS Safety Report 20865117 (Version 1)
Quarter: 2022Q2

REPORT INFORMATION
  Report Type: Spontaneous
  Country: AU (occurrence: AU)
  Receive Date: 20220524
  Receipt Date: 20220524
  Transmission Date: 20220721
  Serious: Yes (Hospitalization, Other)
  Sender: FDA-Public Use
  Company Number: AU-SA-SAC20220516001539

PATIENT
  Sex: Female

DRUGS (3)
  1. ARAVA [Suspect]
     Active Substance: LEFLUNOMIDE
  2. METHOTREXATE [Suspect]
     Active Substance: METHOTREXATE
     Dosage: UNK
     Dates: start: 202103, end: 202103
  3. ENBREL [Concomitant]
     Active Substance: ETANERCEPT

REACTIONS (3)
  - Immune system disorder [Unknown]
  - Drug intolerance [Unknown]
  - Drug ineffective [Unknown]
